FAERS Safety Report 24172442 (Version 2)
Quarter: 2024Q3

REPORT INFORMATION
  Report Type: Spontaneous
  Country: US (occurrence: US)
  Receive Date: 20240805
  Receipt Date: 20240808
  Transmission Date: 20241016
  Serious: Yes (Hospitalization)
  Sender: ABBVIE
  Company Number: US-ABBVIE-5863740

PATIENT
  Sex: Female

DRUGS (1)
  1. REFRESH RELIEVA PF [Suspect]
     Active Substance: CARBOXYMETHYLCELLULOSE SODIUM\GLYCERIN
     Indication: Eye pruritus
     Route: 047

REACTIONS (2)
  - Hip surgery [Unknown]
  - Product container issue [Unknown]
